FAERS Safety Report 8317778-7 (Version None)
Quarter: 2012Q2

REPORT INFORMATION
  Report Type: 
  Country: None (occurrence: None)
  Receive Date: 20120427
  Receipt Date: 20120417
  Transmission Date: 20120825
  Serious: Yes (Hospitalization)
  Sender: FDA-Public Use
  Company Number: DE-PFIZER INC-2012075817

PATIENT
  Age: 70 Year
  Sex: Male

DRUGS (4)
  1. NEXAVAR [Suspect]
     Indication: METASTATIC RENAL CELL CARCINOMA
     Dosage: UNK
     Dates: start: 20090320, end: 20100418
  2. LEVOFLOXACIN [Concomitant]
     Dosage: 250 MG, DAILY
     Dates: start: 20120323
  3. SUTENT [Suspect]
     Indication: METASTATIC RENAL CELL CARCINOMA
     Dosage: 25 MG, 1X/DAY
     Route: 048
     Dates: start: 20100518
  4. LEVOFLOXACIN [Concomitant]
     Indication: CYSTITIS
     Dosage: 500 MG, DAILY
     Dates: start: 20120322, end: 20120322

REACTIONS (1)
  - FALL [None]
